FAERS Safety Report 9144205 (Version 3)
Quarter: 2013Q2

REPORT INFORMATION
  Report Type: Spontaneous
  Country: US (occurrence: US)
  Receive Date: 20130306
  Receipt Date: 20130408
  Transmission Date: 20140414
  Serious: Yes (Other)
  Sender: FDA-Public Use
  Company Number: US-ELI_LILLY_AND_COMPANY-US201201006553

PATIENT
  Age: 74 Year
  Sex: Female
  Weight: 58.05 kg

DRUGS (4)
  1. FORTEO [Suspect]
     Indication: OSTEOPOROSIS
     Dosage: 20 UG, QD
     Route: 065
     Dates: start: 20120126
  2. FORTEO [Suspect]
     Dosage: 20 UG, QD
     Route: 065
  3. FORTEO [Suspect]
     Dosage: 20 UG, QD
     Route: 065
  4. FORTEO [Suspect]
     Dosage: 20 UG, QD
     Route: 065

REACTIONS (22)
  - Traumatic shock [Recovered/Resolved]
  - Fall [Recovered/Resolved]
  - Musculoskeletal pain [Unknown]
  - Burning sensation [Recovered/Resolved]
  - Injection site haemorrhage [Recovered/Resolved]
  - Injection site haemorrhage [Unknown]
  - Injection site erythema [Recovering/Resolving]
  - Back pain [Unknown]
  - Incorrect dose administered [Unknown]
  - Intentional drug misuse [Recovered/Resolved]
  - Injection site bruising [Unknown]
  - Injection site pain [Unknown]
  - Rash [Unknown]
  - Muscle spasms [Unknown]
  - Vitamin B12 increased [Unknown]
  - Dyspepsia [Unknown]
  - Blood folate increased [Unknown]
  - Vitamin B6 increased [Unknown]
  - Rheumatoid factor increased [Unknown]
  - Gastroenteritis viral [Recovered/Resolved]
  - Inflammation [Unknown]
  - Contusion [Unknown]
